FAERS Safety Report 13392172 (Version 2)
Quarter: 2017Q2

REPORT INFORMATION
  Report Type: Spontaneous
  Country: CN (occurrence: CN)
  Receive Date: 20170331
  Receipt Date: 20170412
  Transmission Date: 20170830
  Serious: No
  Sender: FDA-Public Use
  Company Number: CN-SA-2017SA049876

PATIENT

DRUGS (4)
  1. ASPIRIN. [Suspect]
     Active Substance: ASPIRIN
     Route: 064
  2. PREDNISONE ACETATE [Suspect]
     Active Substance: PREDNISONE ACETATE
     Route: 064
  3. CLEXANE [Suspect]
     Active Substance: ENOXAPARIN SODIUM
     Route: 064
     Dates: start: 20170321
  4. DYDROGESTERONE [Suspect]
     Active Substance: DYDROGESTERONE
     Route: 064
     Dates: start: 20170309

REACTIONS (1)
  - Foetal exposure during pregnancy [Unknown]
